FAERS Safety Report 20060352 (Version 1)
Quarter: 2021Q4

REPORT INFORMATION
  Report Type: Spontaneous
  Country: JP (occurrence: JP)
  Receive Date: 20211112
  Receipt Date: 20211112
  Transmission Date: 20220303
  Serious: Yes (Other)
  Sender: FDA-Public Use
  Company Number: JP-SUN PHARMACEUTICAL INDUSTRIES LTD-2021RR-317349

PATIENT
  Age: 7 Decade
  Sex: Female

DRUGS (5)
  1. IRINOTECAN [Suspect]
     Active Substance: IRINOTECAN
     Indication: Chemotherapy
     Dosage: 165 MILLIGRAM/SQ. METER ON DAY 1
     Route: 065
  2. OXALIPLATIN [Suspect]
     Active Substance: OXALIPLATIN
     Indication: Chemotherapy
     Dosage: 85 MILLIGRAM/SQ. METER ON DAY 1
     Route: 065
  3. LEVOLEUCOVORIN CALCIUM [Suspect]
     Active Substance: LEVOLEUCOVORIN CALCIUM
     Indication: Chemotherapy
     Dosage: 200 MILLIGRAM/SQ. METER ON DAY 1
  4. BEVACIZUMAB [Suspect]
     Active Substance: BEVACIZUMAB
     Indication: Chemotherapy
     Dosage: 5 MILLIGRAM/KILOGRAM, 1DOSE/2 WEEKS
     Route: 065
  5. FLUOROURACIL [Suspect]
     Active Substance: FLUOROURACIL
     Indication: Chemotherapy
     Dosage: 3200 MILLIGRAM/SQ. METER FOR 46 H FROM DAY 1
     Route: 065

REACTIONS (4)
  - Disease recurrence [Unknown]
  - Nausea [Unknown]
  - Diarrhoea [Unknown]
  - Hypertriglyceridaemia [Recovered/Resolved]
